FAERS Safety Report 5030802-2 (Version None)
Quarter: 2006Q2

REPORT INFORMATION
  Report Type: 
  Country: None (occurrence: None)
  Receive Date: 20060614
  Receipt Date: 20060608
  Transmission Date: 20061013
  Serious: Yes (Hospitalization, Other)
  Sender: FDA-Public Use
  Company Number: FRWYE164406JUN03

PATIENT
  Age: 54 Year
  Sex: Male

DRUGS (6)
  1. NEORAL [Suspect]
     Indication: PROPHYLAXIS AGAINST TRANSPLANT REJECTION
     Dosage: 400 MG 1X PER 1 DAY
     Route: 048
     Dates: start: 20030430
  2. CELLCEPT [Suspect]
     Indication: PROPHYLAXIS AGAINST TRANSPLANT REJECTION
     Dosage: 2 G 1X PER 1 DAY
     Route: 048
     Dates: start: 20030430
  3. CORTANCYL (PREDNISONE, , 0) [Suspect]
     Indication: PROPHYLAXIS AGAINST TRANSPLANT REJECTION
     Dosage: 17.5 MG 1X PER 1 DAY
     Route: 048
     Dates: start: 20030430
  4. PREVISCAN (FLUINDIONE) [Concomitant]
  5. SOTALOL HCL [Concomitant]
  6. AMLODIPINE [Concomitant]

REACTIONS (6)
  - ATELECTASIS [None]
  - BACTERIAL PYELONEPHRITIS [None]
  - PNEUMONIA [None]
  - PROSTATITIS [None]
  - SEPSIS [None]
  - STAPHYLOCOCCAL INFECTION [None]
